FAERS Safety Report 9750179 (Version 1)
Quarter: 2013Q4

REPORT INFORMATION
  Report Type: Report from Study
  Country: US (occurrence: US)
  Receive Date: 20131212
  Receipt Date: 20131212
  Transmission Date: 20140711
  Serious: Yes (Other)
  Sender: FDA-Public Use
  Company Number: US-GLAXOSMITHKLINE-A1039379B

PATIENT
  Age: 53 Year
  Sex: Male
  Weight: 103.8 kg

DRUGS (7)
  1. DABRAFENIB [Suspect]
     Indication: METASTATIC MALIGNANT MELANOMA
     Dosage: 150MG TWICE PER DAY
     Route: 048
     Dates: start: 20130806
  2. TRAMETINIB [Suspect]
     Indication: METASTATIC MALIGNANT MELANOMA
     Dosage: 2MG PER DAY
     Route: 048
     Dates: start: 20130806
  3. NORVASC [Concomitant]
     Indication: HYPERTENSION
     Route: 048
     Dates: start: 20130826
  4. HYDROCORTISONE 2.5% [Concomitant]
     Indication: PROPHYLAXIS
     Dosage: 1APP TWICE PER DAY
     Route: 061
     Dates: start: 20130716
  5. HYDRALAZINE [Concomitant]
     Indication: HYPERTENSION
     Dosage: 100MG TWICE PER DAY
     Route: 048
     Dates: start: 20130924
  6. POTASSIUM PHOSPHATE [Concomitant]
     Indication: HYPOPHOSPHATAEMIA
     Route: 048
     Dates: start: 20130910
  7. ATENOLOL [Concomitant]
     Indication: HYPERTENSION
     Dates: start: 20131007

REACTIONS (2)
  - Squamous cell carcinoma [Unknown]
  - Actinic keratosis [Unknown]
